FAERS Safety Report 6665127-2 (Version None)
Quarter: 2010Q2

REPORT INFORMATION
  Report Type: 
  Country: None (occurrence: None)
  Receive Date: 20100402
  Receipt Date: 20100329
  Transmission Date: 20101027
  Serious: Yes (Death)
  Sender: FDA-Public Use
  Company Number: KR-TEVA-229012ISR

PATIENT
  Age: 33 Year
  Sex: Male

DRUGS (4)
  1. VINCRISTINE [Suspect]
  2. PREDNISOLONE [Suspect]
  3. CYCLOPHOSPHAMIDE [Suspect]
  4. DEXAMETHASONE [Suspect]

REACTIONS (1)
  - TUMOUR LYSIS SYNDROME [None]
